FAERS Safety Report 5753765-0 (Version None)
Quarter: 2008Q2

REPORT INFORMATION
  Report Type: 
  Country: None (occurrence: None)
  Receive Date: 20080530
  Receipt Date: 20080521
  Transmission Date: 20081010
  Serious: Yes (Other)
  Sender: FDA-Public Use
  Company Number: GB-ABBOTT-08P-167-0453269-00

PATIENT
  Sex: Female

DRUGS (12)
  1. VALPROIC ACID [Suspect]
     Indication: EPILEPSY
     Dosage: 800 MG DAILY
  2. VALPROIC ACID [Suspect]
     Dosage: 1200 MG DAILY
  3. VALPROIC ACID [Suspect]
     Dosage: 1600 MG DAILY
     Dates: start: 19860501
  4. VALPROIC ACID [Suspect]
     Dosage: 2000 MG DAILY
     Dates: start: 19910601
  5. VALPROIC ACID [Suspect]
     Dosage: 1200 MG DAILY
     Dates: start: 19950101
  6. VALPROIC ACID [Suspect]
  7. VALPROATE SODIUM [Suspect]
     Indication: EPILEPSY
     Dosage: 2000 MG DAILY
  8. FOLIC ACID [Concomitant]
     Indication: DRUG USE FOR UNKNOWN INDICATION
  9. CLOBAZAM [Concomitant]
     Indication: EPILEPSY
     Dates: start: 20001212, end: 20010305
  10. CARBAMAZEPINE [Concomitant]
     Indication: DRUG USE FOR UNKNOWN INDICATION
     Dates: start: 19901201, end: 19910401
  11. PHENYTOIN [Concomitant]
     Indication: DRUG USE FOR UNKNOWN INDICATION
     Dates: start: 19910401, end: 19910601
  12. LAMOTRIGINE [Concomitant]
     Indication: DRUG USE FOR UNKNOWN INDICATION
     Dosage: 100 MG DAILY

REACTIONS (1)
  - GRAND MAL CONVULSION [None]
